FAERS Safety Report 16356520 (Version 2)
Quarter: 2019Q2

REPORT INFORMATION
  Report Type: Spontaneous
  Country: TW (occurrence: TW)
  Receive Date: 20190527
  Receipt Date: 20190624
  Transmission Date: 20190711
  Serious: Yes (Hospitalization)
  Sender: FDA-Public Use
  Company Number: TW-AMGEN-TWNSP2019080331

PATIENT
  Age: 42 Year
  Sex: Female

DRUGS (2)
  1. ENBREL [Suspect]
     Active Substance: ETANERCEPT
     Indication: RHEUMATOID ARTHRITIS
     Dosage: 25 MILLIGRAM, 2 TIMES/WK
     Route: 058
     Dates: start: 20100705, end: 201905
  2. QUININE [Concomitant]
     Active Substance: QUININE
     Indication: RHEUMATOID ARTHRITIS
     Dosage: UNK

REACTIONS (2)
  - Pyrexia [Recovering/Resolving]
  - Furuncle [Not Recovered/Not Resolved]

NARRATIVE: CASE EVENT DATE: 20190514
